FAERS Safety Report 19811777 (Version 8)
Quarter: 2023Q4

REPORT INFORMATION
  Report Type: Spontaneous
  Country: US (occurrence: US)
  Receive Date: 20210909
  Receipt Date: 20231207
  Transmission Date: 20240109
  Serious: Yes (Other)
  Sender: FDA-Public Use
  Company Number: US-PFIZER INC-2021384103

PATIENT
  Age: 66 Year
  Sex: Female

DRUGS (2)
  1. XELJANZ [Suspect]
     Active Substance: TOFACITINIB CITRATE
     Indication: Rheumatoid arthritis
     Dosage: 5 MG PO BID
     Route: 048
  2. XELJANZ [Suspect]
     Active Substance: TOFACITINIB CITRATE
     Dosage: 5 MG PO QD
     Route: 048

REACTIONS (9)
  - Paralysis [Unknown]
  - Parkinson^s disease [Unknown]
  - Depression [Unknown]
  - Blood glucose decreased [Unknown]
  - Sleep disorder [Unknown]
  - Bradykinesia [Unknown]
  - Tremor [Unknown]
  - Nasopharyngitis [Unknown]
  - Intentional product misuse [Unknown]
